FAERS Safety Report 8252198-5 (Version None)
Quarter: 2012Q2

REPORT INFORMATION
  Report Type: 
  Country: None (occurrence: None)
  Receive Date: 20120402
  Receipt Date: 20110902
  Transmission Date: 20120825
  Serious: No
  Sender: FDA-Public Use
  Company Number: US-ABBOTT-11P-163-0852047-00

PATIENT
  Age: 65 Year
  Sex: Male
  Weight: 106.69 kg

DRUGS (1)
  1. ANDROGEL [Suspect]
     Indication: LIBIDO DECREASED
     Dosage: PACKETS, DAILY DOSE 5 GRAM
     Dates: start: 20110612

REACTIONS (3)
  - WEIGHT INCREASED [None]
  - DRUG INEFFECTIVE [None]
  - LIBIDO DECREASED [None]
